FAERS Safety Report 4822000-X (Version None)
Quarter: 2005Q4

REPORT INFORMATION
  Report Type: 
  Country: None (occurrence: None)
  Receive Date: 20051107
  Receipt Date: 20051031
  Transmission Date: 20060501
  Serious: Yes (Hospitalization)
  Sender: FDA-Public Use
  Company Number: US-JNJFOC-20051100315

PATIENT
  Age: 10 Month
  Sex: Female
  Weight: 7.27 kg

DRUGS (2)
  1. TYLENOL (CAPLET) [Suspect]
     Route: 048
  2. TYLENOL (CAPLET) [Suspect]
     Indication: DRUG USE FOR UNKNOWN INDICATION
     Dosage: 500 MG PO; }24 HR {=1 WEEK
     Route: 048

REACTIONS (2)
  - MEDICATION ERROR [None]
  - TRANSAMINASES INCREASED [None]
